FAERS Safety Report 20957985 (Version 1)
Quarter: 2022Q2

REPORT INFORMATION
  Report Type: Spontaneous
  Country: US (occurrence: None)
  Receive Date: 20220614
  Receipt Date: 20220614
  Transmission Date: 20220721
  Serious: Yes (Other)
  Sender: FDA-Public Use
  Company Number: US-ROCHE-3115821

PATIENT
  Age: 83 Year
  Sex: Female
  Weight: 49.940 kg

DRUGS (10)
  1. BONIVA [Suspect]
     Active Substance: IBANDRONATE SODIUM
     Indication: Osteoporosis
     Route: 048
     Dates: start: 202009
  2. LEVOTHYROXINE [Concomitant]
     Active Substance: LEVOTHYROXINE
     Indication: Autoimmune thyroiditis
     Route: 048
  3. SILDENAFIL [Concomitant]
     Active Substance: SILDENAFIL
     Indication: Pulmonary hypertension
     Route: 048
  4. METOPROLOL [Concomitant]
     Active Substance: METOPROLOL
     Route: 048
  5. ETHACRYNIC ACID [Concomitant]
     Active Substance: ETHACRYNIC ACID
     Indication: Hypertension
     Route: 048
  6. SPIRONOLACTONE [Concomitant]
     Active Substance: SPIRONOLACTONE
     Indication: Hypertension
     Route: 048
  7. HUMALOG [Concomitant]
     Active Substance: INSULIN LISPRO
     Indication: Type 1 diabetes mellitus
     Route: 048
  8. LANTUS [Concomitant]
     Active Substance: INSULIN GLARGINE
     Indication: Type 1 diabetes mellitus
  9. MAGNESIUM [Concomitant]
     Active Substance: MAGNESIUM
  10. VITAMINS [Concomitant]
     Active Substance: VITAMINS

REACTIONS (7)
  - Osteonecrosis of jaw [Unknown]
  - Dental necrosis [Unknown]
  - Weight decreased [Unknown]
  - Osteomyelitis [Recovered/Resolved]
  - Depression [Not Recovered/Not Resolved]
  - Pain [Not Recovered/Not Resolved]
  - Paraesthesia [Not Recovered/Not Resolved]

NARRATIVE: CASE EVENT DATE: 20201029
